FAERS Safety Report 21066398 (Version 1)
Quarter: 2022Q3

REPORT INFORMATION
  Report Type: Spontaneous
  Country: US (occurrence: None)
  Receive Date: 20220711
  Receipt Date: 20220711
  Transmission Date: 20221026
  Serious: No
  Sender: FDA-Public Use
  Company Number: US-Eisai Medical Research-EC-2022-116894

PATIENT
  Age: 58 Year
  Sex: Female

DRUGS (2)
  1. LENVATINIB [Suspect]
     Active Substance: LENVATINIB
     Indication: Metastatic renal cell carcinoma
     Dosage: DOSE AND FREQUENCY UNKNOWN
     Route: 048
  2. LENVATINIB [Suspect]
     Active Substance: LENVATINIB
     Dosage: DOSE AND FREQUENCY UNKNOWN
     Route: 048

REACTIONS (2)
  - Thyroiditis [Recovered/Resolved]
  - Hypothyroidism [Unknown]
